FAERS Safety Report 19086864 (Version 1)
Quarter: 2021Q2

REPORT INFORMATION
  Report Type: Spontaneous
  Country: US (occurrence: US)
  Receive Date: 20210401
  Receipt Date: 20210401
  Transmission Date: 20210717
  Serious: Yes (Hospitalization)
  Sender: FDA-Public Use
  Company Number: None

PATIENT
  Age: 77 Year
  Sex: Male

DRUGS (2)
  1. NAPROXEN (NAPROXEN NA 220MG TAB) [Suspect]
     Active Substance: NAPROXEN
     Indication: PAIN
     Dates: start: 20210310, end: 20210323
  2. PREDNISONE (PREDNISONE 1MG TAB) [Suspect]
     Active Substance: PREDNISONE
     Dates: start: 20210220, end: 20210326

REACTIONS (4)
  - Anaemia [None]
  - Gastric haemorrhage [None]
  - Hypotension [None]
  - End stage renal disease [None]

NARRATIVE: CASE EVENT DATE: 20210323
